FAERS Safety Report 20797462 (Version 7)
Quarter: 2022Q4

REPORT INFORMATION
  Report Type: Report from Study
  Country: US (occurrence: US)
  Receive Date: 20220506
  Receipt Date: 20221118
  Transmission Date: 20230113
  Serious: No
  Sender: FDA-Public Use
  Company Number: US-NOVARTISTESTPH-NVSC2022US104183

PATIENT
  Age: 55 Year
  Sex: Female

DRUGS (1)
  1. KESIMPTA [Suspect]
     Active Substance: OFATUMUMAB
     Indication: Relapsing multiple sclerosis
     Dosage: 20 MG, QMO
     Route: 058
     Dates: start: 20220407

REACTIONS (6)
  - Fatigue [Unknown]
  - Gait disturbance [Unknown]
  - Migraine [Unknown]
  - Peroneal nerve palsy [Unknown]
  - Headache [Unknown]
  - Product supply issue [Unknown]

NARRATIVE: CASE EVENT DATE: 20220504
